FAERS Safety Report 5486993-2 (Version None)
Quarter: 2007Q4

REPORT INFORMATION
  Report Type: 
  Country: None (occurrence: None)
  Receive Date: 20071016
  Receipt Date: 20071010
  Transmission Date: 20080405
  Serious: Yes (Hospitalization)
  Sender: FDA-Public Use
  Company Number: FR-WYE-G00450207

PATIENT
  Age: 80 Year
  Sex: Female

DRUGS (5)
  1. EFFEXOR XR [Suspect]
     Dosage: UNKNOWN
     Route: 048
     Dates: start: 20070701
  2. FORLAX [Concomitant]
     Dosage: UNKNOWN
  3. DOLIPRANE [Concomitant]
     Dosage: UNKNOWN
  4. CORDARONE [Concomitant]
     Dosage: UNKNOWN
  5. ISOPTIN [Concomitant]
     Dosage: UNKNOWN

REACTIONS (4)
  - DERMATITIS ALLERGIC [None]
  - EOSINOPHIL COUNT INCREASED [None]
  - GENERAL PHYSICAL HEALTH DETERIORATION [None]
  - HYPONATRAEMIA [None]
